FAERS Safety Report 15337830 (Version 6)
Quarter: 2019Q1

REPORT INFORMATION
  Report Type: Report from Study
  Country: US (occurrence: US)
  Receive Date: 20180831
  Receipt Date: 20190321
  Transmission Date: 20190417
  Serious: Yes (Other)
  Sender: FDA-Public Use
  Company Number: PHHY2018US087286

PATIENT
  Sex: Female
  Weight: 107.3 kg

DRUGS (4)
  1. COSENTYX [Suspect]
     Active Substance: SECUKINUMAB
     Dosage: 150 MG, QMO
     Route: 058
     Dates: start: 201712
  2. OTEZLA [Suspect]
     Active Substance: APREMILAST
     Indication: PRODUCT USED FOR UNKNOWN INDICATION
     Route: 065
  3. COSENTYX [Suspect]
     Active Substance: SECUKINUMAB
     Indication: PSORIATIC ARTHROPATHY
     Dosage: 300 MG, QMO
     Route: 058
     Dates: start: 20171205
  4. COSENTYX [Suspect]
     Active Substance: SECUKINUMAB
     Dosage: 300 MG, QMO
     Route: 058
     Dates: start: 201804

REACTIONS (8)
  - Arthritis [Unknown]
  - Drug effect decreased [Unknown]
  - Psoriatic arthropathy [Unknown]
  - Upper respiratory tract infection [Unknown]
  - Psoriasis [Recovering/Resolving]
  - Alopecia [Unknown]
  - Seborrhoea [Unknown]
  - Sinus disorder [Unknown]
